FAERS Safety Report 5135921-8 (Version None)
Quarter: 2006Q4

REPORT INFORMATION
  Report Type: 
  Country: None (occurrence: None)
  Receive Date: 20061020
  Receipt Date: 20061012
  Transmission Date: 20070319
  Serious: No
  Sender: FDA-Public Use
  Company Number: 2006-149106-NL

PATIENT
  Sex: Female

DRUGS (3)
  1. MIRTAZAPINE [Suspect]
     Dosage: DF
  2. VALPROATE SODIUM [Suspect]
     Dosage: DF
  3. MELOXICAM [Suspect]
     Dosage: DF

REACTIONS (2)
  - CONVULSION [None]
  - DRUG INTERACTION [None]
